FAERS Safety Report 13347916 (Version 1)
Quarter: 2017Q1

REPORT INFORMATION
  Report Type: Report from Study
  Country: None (occurrence: CO)
  Receive Date: 20170318
  Receipt Date: 20170318
  Transmission Date: 20170428
  Serious: Yes (Other)
  Sender: FDA-Public Use
  Company Number: CO-ABBVIE-17P-036-1904397-00

PATIENT
  Age: 43 Year
  Sex: Female
  Weight: 57 kg

DRUGS (1)
  1. HUMIRA [Suspect]
     Active Substance: ADALIMUMAB
     Indication: PSORIASIS
     Route: 058
     Dates: start: 20151119

REACTIONS (2)
  - Cerumen impaction [Unknown]
  - Deafness [Recovered/Resolved]

NARRATIVE: CASE EVENT DATE: 20170216
